FAERS Safety Report 11988550 (Version 6)
Quarter: 2016Q2

REPORT INFORMATION
  Report Type: Report from Study
  Country: IN (occurrence: IN)
  Receive Date: 20160202
  Receipt Date: 20160523
  Transmission Date: 20160815
  Serious: Yes (Hospitalization)
  Sender: FDA-Public Use
  Company Number: IN-NOVOPROD-477755

PATIENT
  Age: 53 Year
  Sex: Male
  Weight: 84.4 kg

DRUGS (64)
  1. ULTRACET [Concomitant]
     Active Substance: ACETAMINOPHEN\TRAMADOL HYDROCHLORIDE
     Dosage: UNK
     Dates: start: 20160128, end: 20160202
  2. NORMAL SALINE [Concomitant]
     Active Substance: SODIUM CHLORIDE
     Dosage: INJECTION
     Dates: start: 20160120, end: 20160310
  3. ONDASETRON                         /00955301/ [Concomitant]
     Active Substance: ONDANSETRON
     Dosage: INJECTION
     Dates: start: 20160121, end: 20160129
  4. DYTOR [Concomitant]
     Active Substance: TORSEMIDE
     Dosage: INJECTION
     Dates: start: 20160217, end: 20160217
  5. DOXYCYCLINE HYDROCHLORIDE [Concomitant]
     Active Substance: DOXYCYCLINE HYDROCHLORIDE
     Dosage: UNK
     Dates: start: 20160218, end: 20160219
  6. IDEG 100U VIAL [Suspect]
     Active Substance: INSULIN DEGLUDEC
     Indication: TYPE 2 DIABETES MELLITUS
     Dosage: 70 U, QD
     Route: 058
     Dates: start: 20140419, end: 20160120
  7. OPTINEURON                         /00322001/ [Concomitant]
     Dosage: INJECTION
     Dates: start: 20160120, end: 20160127
  8. MAGNOVA                            /01263802/ [Concomitant]
     Dosage: UNK
     Dates: start: 20160120, end: 20160127
  9. LASIX [Concomitant]
     Active Substance: FUROSEMIDE
     Dosage: INJECTION
     Dates: start: 20160121, end: 20160122
  10. DYTOR [Concomitant]
     Active Substance: TORSEMIDE
     Dosage: INJECTION
     Dates: start: 20160204, end: 20160204
  11. OTRIVIN [Concomitant]
     Active Substance: XYLOMETAZOLINE
     Dosage: UNK
     Dates: start: 20160124, end: 20160127
  12. EFCORLIN                           /00028602/ [Concomitant]
     Dosage: INJECTION
     Dates: start: 20160126
  13. PANTOPRAZOLE SODIUM. [Concomitant]
     Active Substance: PANTOPRAZOLE SODIUM
     Dosage: UNK
     Dates: start: 20160128, end: 20160319
  14. PERFALGAN [Concomitant]
     Active Substance: ACETAMINOPHEN
     Dosage: INJECTION
     Dates: start: 20160216, end: 20160217
  15. AUGMENTIN [Concomitant]
     Active Substance: AMOXICILLIN\CLAVULANATE POTASSIUM
     Dosage: INJECTION
     Dates: start: 20160130, end: 20160208
  16. CHYMORAL                           /00087801/ [Concomitant]
     Dosage: UNK
     Dates: start: 20160219, end: 20160219
  17. LACTULOSE. [Concomitant]
     Active Substance: LACTULOSE
     Dosage: UNK
     Dates: start: 20160130, end: 20160209
  18. DIGENE                             /01361001/ [Concomitant]
     Dosage: UNK
     Dates: start: 20160204, end: 20160206
  19. CEFOPERAZONE W/SULBACTAM [Concomitant]
     Active Substance: CEFOPERAZONE\SULBACTAM
     Dosage: INJECTION
     Dates: start: 20160211, end: 20160212
  20. NEOMOL [Concomitant]
     Dosage: INJECTION
     Dates: start: 20160216, end: 20160216
  21. POTRATE MB6 [Concomitant]
     Dosage: UNK
     Dates: start: 20160217, end: 20160223
  22. DOXYCYCLINE. [Concomitant]
     Active Substance: DOXYCYCLINE
     Dosage: UNK
     Dates: start: 20160219, end: 20160219
  23. DIGENE                             /01361001/ [Concomitant]
     Dosage: UNK
     Dates: start: 20160204, end: 20160206
  24. DUOLIN                             /01033501/ [Concomitant]
     Dosage: NEBULIZATION
     Dates: start: 20160121, end: 20160125
  25. FEBRINIL [Concomitant]
     Dosage: INJECTION
     Dates: start: 20160212, end: 20160212
  26. LANTUS [Concomitant]
     Active Substance: INSULIN GLARGINE
     Dosage: UNK
     Dates: start: 20160125
  27. DEXTROSE WATER [Concomitant]
     Dosage: INJECTION
     Dates: start: 20160124, end: 20160310
  28. DIGENE                             /01361001/ [Concomitant]
     Dosage: UNK
     Dates: start: 20160207, end: 20160209
  29. CIPLOX                             /00697201/ [Concomitant]
     Dosage: EYE DROPS
     Dates: start: 20160212, end: 20160224
  30. CODEINE [Concomitant]
     Active Substance: CODEINE
     Dosage: UNK
     Dates: start: 20160215, end: 20160215
  31. FOLIMAX [Concomitant]
     Dosage: UNK
     Dates: start: 20160224, end: 20160303
  32. DYTOR [Concomitant]
     Active Substance: TORSEMIDE
     Dosage: TABLET
     Dates: start: 20160205, end: 20160223
  33. PERFALGAN [Concomitant]
     Active Substance: ACETAMINOPHEN
     Dosage: INJECTION
     Dates: start: 20160128, end: 20160128
  34. POTRATE MB6 [Concomitant]
     Dosage: UNK
     Dates: start: 20160216, end: 20160216
  35. L DIO 1 M [Concomitant]
     Dosage: UNK
     Dates: start: 20160115, end: 20160118
  36. XYLOMIST [Concomitant]
     Dosage: UNK
     Dates: start: 20160115, end: 20160118
  37. ONDASETRON                         /00955301/ [Concomitant]
     Active Substance: ONDANSETRON
     Dosage: INJECTION
     Dates: start: 20160216, end: 20160217
  38. SODIUM BICARBONATE. [Concomitant]
     Active Substance: SODIUM BICARBONATE
     Dosage: INJECTION
     Dates: start: 20160121, end: 20160121
  39. TONOFOLIC Z [Concomitant]
     Dosage: UNK
     Dates: start: 20160224, end: 20160304
  40. NOVORAPID [Suspect]
     Active Substance: INSULIN ASPART
     Indication: TYPE 2 DIABETES MELLITUS
     Dosage: 100 U, QD
     Route: 058
     Dates: start: 20140419, end: 20160120
  41. ONDASETRON                         /00955301/ [Concomitant]
     Active Substance: ONDANSETRON
     Dosage: TBL
     Dates: start: 20160224, end: 20160228
  42. DYTOR [Concomitant]
     Active Substance: TORSEMIDE
     Dosage: INJECTION
     Dates: start: 20160121, end: 20160121
  43. AUGEOZ [Concomitant]
     Dosage: INJECTION
     Dates: start: 20160122, end: 20160127
  44. ALLEGRA [Concomitant]
     Active Substance: FEXOFENADINE HYDROCHLORIDE
     Dosage: UNK
     Dates: start: 20160123, end: 20160127
  45. CHYMORAL                           /00087801/ [Concomitant]
     Dosage: UNK
     Dates: start: 20160130, end: 20160202
  46. ENEMA                              /00200601/ [Concomitant]
     Dosage: UNK
     Dates: start: 20160130, end: 20160130
  47. DOMPERIDONE [Concomitant]
     Active Substance: DOMPERIDONE
     Dosage: UNK
     Dates: start: 20160224, end: 20160228
  48. LINEZOLID POLPHARMA [Concomitant]
     Dosage: UNK
     Dates: start: 20160115, end: 20160118
  49. ULTRACET [Concomitant]
     Active Substance: ACETAMINOPHEN\TRAMADOL HYDROCHLORIDE
     Dosage: UNK
     Dates: start: 20160115, end: 20160118
  50. VITAMIN B COMPLEX [Concomitant]
     Active Substance: CYANOCOBALAMIN\DEXPANTHENOL\NIACINAMIDE\PYRIDOXINE HYDROCHLORIDE\RIBOFLAVIN 5^-PHOSPHATE SODIUM\THIAMINE HYDROCHLORIDE\VITAMIN B COMPLEX
     Dosage: UNK
     Dates: start: 20160115, end: 20160120
  51. NEXPRO                             /01479302/ [Concomitant]
     Dosage: UNK
     Dates: start: 20160120, end: 20160127
  52. ACETAMINOPHEN. [Concomitant]
     Active Substance: ACETAMINOPHEN
     Dosage: UNK
     Dates: start: 20160121, end: 20160217
  53. OTRINOZ [Concomitant]
     Dosage: UNK
     Dates: start: 20160123, end: 20160123
  54. FEBRINIL [Concomitant]
     Dosage: INJECTION
     Dates: start: 20160124, end: 20160124
  55. PARAFFIN [Concomitant]
     Active Substance: PARAFFIN
     Dosage: NASAL DROPS
     Dates: start: 20160124, end: 20160127
  56. MAGNESIUM SULPHATE                 /01097001/ [Concomitant]
     Active Substance: MAGNESIUM SULFATE
     Dosage: INJECTION
     Dates: start: 20160129, end: 20160129
  57. MAGNESIUM SULPHATE                 /01097001/ [Concomitant]
     Active Substance: MAGNESIUM SULFATE
     Dosage: INJECTION
     Dates: start: 20160204, end: 20160204
  58. LACTULOSE. [Concomitant]
     Active Substance: LACTULOSE
     Dosage: UNK
     Dates: start: 20160219, end: 20160223
  59. DOMPERIDONE [Concomitant]
     Active Substance: DOMPERIDONE
     Dosage: UNK
     Dates: start: 20160214, end: 20160223
  60. COLISTIMETHATE [Concomitant]
     Active Substance: COLISTIMETHATE SODIUM
     Dosage: INJECTION
     Dates: start: 20160217, end: 20160218
  61. PERINORM [Concomitant]
     Dosage: UNK
     Dates: start: 20160120, end: 20160127
  62. CONTRAMAL [Concomitant]
     Active Substance: TRAMADOL HYDROCHLORIDE
     Dosage: INJECTION
     Dates: start: 20160120, end: 20160127
  63. ALERFIX TOTAL [Concomitant]
     Dosage: UNK
     Dates: start: 20160129, end: 20160319
  64. DIGENE                             /01361001/ [Concomitant]
     Dosage: UNK
     Dates: start: 20160207, end: 20160209

REACTIONS (3)
  - Mucormycosis [Recovering/Resolving]
  - Hyperkalaemia [Recovered/Resolved]
  - Diabetes mellitus inadequate control [Recovered/Resolved]

NARRATIVE: CASE EVENT DATE: 20160108
